FAERS Safety Report 8494552-2 (Version None)
Quarter: 2012Q3

REPORT INFORMATION
  Report Type: 
  Country: None (occurrence: None)
  Receive Date: 20120709
  Receipt Date: 20120629
  Transmission Date: 20120928
  Serious: Yes (Hospitalization, Other)
  Sender: FDA-Public Use
  Company Number: JP-GENZYME-THYM-1002886

PATIENT
  Sex: Female
  Weight: 44 kg

DRUGS (12)
  1. LENOGRASTIM [Concomitant]
     Indication: BONE MARROW CONDITIONING REGIMEN
     Dosage: UNK
     Dates: start: 20110106, end: 20110107
  2. METHYLPREDNISOLONE [Concomitant]
     Indication: PREMEDICATION
     Dosage: UNK
     Dates: start: 20110109, end: 20110119
  3. THYMOGLOBULIN [Suspect]
     Indication: BONE MARROW CONDITIONING REGIMEN
     Dosage: 110 MG, QD
     Route: 042
     Dates: start: 20110109, end: 20110110
  4. CYCLOPHOSPHAMIDE [Concomitant]
     Indication: BONE MARROW CONDITIONING REGIMEN
     Dosage: UNK
     Dates: start: 20110109, end: 20110110
  5. TACROLIMUS [Concomitant]
     Indication: PROPHYLAXIS AGAINST GRAFT VERSUS HOST DISEASE
     Dosage: UNK
     Dates: start: 20110301
  6. CYCLOSPORINE [Concomitant]
     Indication: PROPHYLAXIS AGAINST GRAFT VERSUS HOST DISEASE
     Dosage: UNK
     Dates: start: 20110111, end: 20110228
  7. PREDNISOLONE SODIUM [Concomitant]
     Indication: PREMEDICATION
     Dosage: UNK
     Dates: start: 20110120, end: 20110203
  8. PREDNISOLONE [Concomitant]
     Indication: ACUTE GRAFT VERSUS HOST DISEASE
     Dosage: UNK
     Dates: start: 20110215, end: 20110218
  9. CYTARABINE [Concomitant]
     Indication: BONE MARROW CONDITIONING REGIMEN
     Dosage: UNK
     Dates: start: 20110107, end: 20110108
  10. GLYCYRRHIZIC ACID_DL METHIONINE COMBINED DRUG [Concomitant]
     Indication: ACUTE GRAFT VERSUS HOST DISEASE
     Dosage: UNK
     Dates: start: 20110211, end: 20110419
  11. METHYLPREDNISOLONE [Concomitant]
     Indication: ACUTE GRAFT VERSUS HOST DISEASE
     Dosage: UNK
     Dates: start: 20110218, end: 20110321
  12. METHOTREXATE [Concomitant]
     Indication: PROPHYLAXIS AGAINST GRAFT VERSUS HOST DISEASE
     Dosage: UNK
     Dates: start: 20110113, end: 20110118

REACTIONS (9)
  - PANCREATITIS ACUTE [None]
  - PYREXIA [None]
  - CHRONIC GRAFT VERSUS HOST DISEASE [None]
  - TOXIC ENCEPHALOPATHY [None]
  - ACUTE GRAFT VERSUS HOST DISEASE IN SKIN [None]
  - ACUTE GRAFT VERSUS HOST DISEASE IN INTESTINE [None]
  - INTERSTITIAL LUNG DISEASE [None]
  - FEBRILE NEUTROPENIA [None]
  - ACUTE GRAFT VERSUS HOST DISEASE IN LIVER [None]
